FAERS Safety Report 8484519-2 (Version None)
Quarter: 2012Q3

REPORT INFORMATION
  Report Type: 
  Country: None (occurrence: None)
  Receive Date: 20120703
  Receipt Date: 20120628
  Transmission Date: 20120928
  Serious: Yes (Life-Threatening)
  Sender: FDA-Public Use
  Company Number: FR-PFIZER INC-2012155345

PATIENT
  Age: 54 Year
  Sex: Female

DRUGS (10)
  1. SOLU-MEDROL [Suspect]
     Indication: THROMBOTIC THROMBOCYTOPENIC PURPURA
     Dosage: 500 MG, 3X/DAY, 3 BOLUS
     Route: 040
     Dates: start: 20120509
  2. TAZOBACTAM [Suspect]
     Indication: ENTEROCOLITIS BACTERIAL
     Dosage: 1 DF, 2X/DAY
     Route: 042
     Dates: start: 20120509, end: 20120510
  3. CIPROFLOXACIN [Suspect]
     Indication: ENTEROCOLITIS BACTERIAL
     Dosage: 500 MG, 1X/DAY
     Route: 048
  4. RITUXIMAB [Suspect]
     Indication: THROMBOTIC THROMBOCYTOPENIC PURPURA
     Dosage: 1 DF, DAILY
     Route: 042
     Dates: start: 20120509
  5. RITUXIMAB [Suspect]
     Dosage: 1 DF, DAILY
     Route: 042
     Dates: start: 20120512
  6. FLAGYL [Concomitant]
     Dosage: UNK
     Dates: start: 20120502, end: 20120506
  7. SOLU-MEDROL [Suspect]
     Dosage: 1 MG/KG, DAILY
     Route: 040
  8. CIPROFLOXACIN [Suspect]
     Dosage: 1 DF, DAILY
     Route: 042
     Dates: start: 20120509, end: 20120510
  9. AMIKACIN [Suspect]
     Indication: ENTEROCOLITIS BACTERIAL
     Dosage: 1250 MG, SINGLE
     Route: 042
     Dates: start: 20120509, end: 20120509
  10. CEFTRIAXONE [Concomitant]
     Dosage: UNK
     Dates: start: 20120504, end: 20120505

REACTIONS (1)
  - STATUS EPILEPTICUS [None]
